FAERS Safety Report 5315360-7 (Version None)
Quarter: 2007Q2

REPORT INFORMATION
  Report Type: 
  Country: None (occurrence: None)
  Receive Date: 20070502
  Receipt Date: 20070424
  Transmission Date: 20071010
  Serious: Yes (Hospitalization)
  Sender: FDA-Public Use
  Company Number: US-AMGEN-US221832

PATIENT
  Sex: Female
  Weight: 89.9 kg

DRUGS (6)
  1. PROCRIT [Suspect]
     Indication: ANAEMIA
     Route: 058
  2. ANTIHYPERTENSIVE MEDICATION NOS [Concomitant]
  3. ASPIRIN [Concomitant]
  4. CALCIUM CHLORIDE [Concomitant]
  5. MAGNESIUM SULFATE [Concomitant]
  6. STOOL SOFTENER [Concomitant]

REACTIONS (5)
  - HAEMOGLOBIN DECREASED [None]
  - HOSPITALISATION [None]
  - MALAISE [None]
  - NAUSEA [None]
  - SALIVARY HYPERSECRETION [None]
